FAERS Safety Report 26110044 (Version 2)
Quarter: 2025Q4

REPORT INFORMATION
  Report Type: Report from Study
  Country: GB (occurrence: GB)
  Receive Date: 20251201
  Receipt Date: 20251204
  Transmission Date: 20260118
  Serious: Yes (Death, Other)
  Sender: ABBVIE
  Company Number: GB-ABBVIE-6569253

PATIENT
  Sex: Male

DRUGS (1)
  1. HUMIRA [Suspect]
     Active Substance: ADALIMUMAB
     Indication: Crohn^s disease
     Dosage: FOA: SOLUTION FOR INJECTION IN PRE-FILLED PEN?FORM STRENGTH: HUMIRA 40MG/0.4ML?2 PRE-FILLED DISPO...
     Route: 058

REACTIONS (2)
  - Death [Fatal]
  - Terminal state [Unknown]
